FAERS Safety Report 21787766 (Version 1)
Quarter: 2022Q4

REPORT INFORMATION
  Report Type: Report from Study
  Country: NL (occurrence: NL)
  Receive Date: 20221228
  Receipt Date: 20221228
  Transmission Date: 20230113
  Serious: Yes (Death, Hospitalization, Other)
  Sender: FDA-Public Use
  Company Number: NL-Accord-293165

PATIENT
  Age: 17 Year

DRUGS (1)
  1. METHOTREXATE [Suspect]
     Active Substance: METHOTREXATE
     Indication: Osteosarcoma

REACTIONS (4)
  - Stomatitis [Unknown]
  - Proctitis [Unknown]
  - Septic shock [Fatal]
  - Neutropenic colitis [Fatal]
